FAERS Safety Report 25440097 (Version 1)
Quarter: 2025Q2

REPORT INFORMATION
  Report Type: Spontaneous
  Country: IT (occurrence: IT)
  Receive Date: 20250616
  Receipt Date: 20250616
  Transmission Date: 20250716
  Serious: Yes (Other)
  Sender: PFIZER
  Company Number: IT-PFIZER INC-PV202500070616

PATIENT
  Age: 69 Year
  Sex: Male

DRUGS (7)
  1. ENCORAFENIB [Suspect]
     Active Substance: ENCORAFENIB
     Indication: Metastatic malignant melanoma
     Dosage: 450 MG, 1X/DAY
     Dates: start: 202101
  2. ENCORAFENIB [Suspect]
     Active Substance: ENCORAFENIB
     Indication: Plasma cell myeloma
     Dosage: 300 MG, 1X/DAY
     Dates: start: 2021
  3. ENCORAFENIB [Suspect]
     Active Substance: ENCORAFENIB
     Dosage: 200 MG, 1X/DAY
     Dates: start: 202109, end: 202111
  4. ENCORAFENIB [Suspect]
     Active Substance: ENCORAFENIB
     Dosage: 225 MG, 1X/DAY
     Dates: start: 202307
  5. BINIMETINIB [Suspect]
     Active Substance: BINIMETINIB
     Indication: Metastatic malignant melanoma
     Dosage: 45 MG, 2X/DAY
     Dates: start: 202101
  6. BINIMETINIB [Suspect]
     Active Substance: BINIMETINIB
     Indication: Plasma cell myeloma
     Dosage: 30 MG, 2X/DAY
     Dates: start: 2021, end: 202111
  7. BINIMETINIB [Suspect]
     Active Substance: BINIMETINIB
     Dosage: 60 MG, 1X/DAY
     Dates: start: 202307

REACTIONS (2)
  - Acute kidney injury [Recovering/Resolving]
  - Hyperpyrexia [Unknown]

NARRATIVE: CASE EVENT DATE: 20210901
